FAERS Safety Report 15504446 (Version 1)
Quarter: 2018Q4

REPORT INFORMATION
  Report Type: Report from Study
  Country: ES (occurrence: ES)
  Receive Date: 20181016
  Receipt Date: 20181016
  Transmission Date: 20190205
  Serious: Yes (Hospitalization)
  Sender: FDA-Public Use
  Company Number: ES-ACCORD-073249

PATIENT
  Age: 63 Year
  Sex: Male

DRUGS (5)
  1. LACOSAMIDE. [Concomitant]
     Active Substance: LACOSAMIDE
     Dosage: 100 MG EVERY 12 HOURS, 5 MG FROM 05-JAN-2017,1500 MG 07-MAR-2017 TO 21-MAR-2017 EVERY 24 HOURS
     Dates: start: 20161007
  2. CAPECITABINE. [Suspect]
     Active Substance: CAPECITABINE
     Indication: PRODUCT USED FOR UNKNOWN INDICATION
     Dosage: 1500 MG EVERY 12 HOURS FROM 07-MAR-2017 TO 21-MAR-2017
     Dates: start: 20170307, end: 20170321
  3. RAMIPRIL. [Concomitant]
     Active Substance: RAMIPRIL
     Dosage: 100 MG EVERY 12 HOURS FROM 07-OCT-2016, 0.5 MG FROM 20-JAN-2016
     Dates: start: 20170105
  4. RABEPRAZOLE/RABEPRAZOLE SODIUM [Concomitant]
     Dosage: 20 MG EVERY 24 HOURS, 5 MG FROM 05-JAN-2017, 1500 MG EVERY 12 HOURS FROM 07-MAR-2017 TO 21-MAR-2017
     Dates: start: 20170217
  5. LORAZEPAM. [Concomitant]
     Active Substance: LORAZEPAM
     Dosage: 0.5 MG EVERY 24 HOURS, 1500 MG EVERY 12 HOURS FROM 07-MAR-2017 TO 21-MAR-2017
     Dates: start: 20160120

REACTIONS (2)
  - Metabolic acidosis [Recovered/Resolved]
  - Acute kidney injury [Recovered/Resolved]

NARRATIVE: CASE EVENT DATE: 20170315
